FAERS Safety Report 7426413-1 (Version None)
Quarter: 2011Q2

REPORT INFORMATION
  Report Type: 
  Country: None (occurrence: None)
  Receive Date: 20110420
  Receipt Date: 20110413
  Transmission Date: 20111010
  Serious: Yes (Other)
  Sender: FDA-Public Use
  Company Number: HU-PFIZER INC-2011082146

PATIENT
  Age: 83 Year
  Sex: Female

DRUGS (8)
  1. PERINDOPRIL [Concomitant]
     Dosage: UNK
  2. ACENOCUMAROL [Suspect]
  3. DICLOFENAC [Suspect]
  4. ALLOPURINOL [Concomitant]
     Dosage: UNK
  5. ATORVASTATIN CALCIUM [Suspect]
     Dosage: UNK
  6. INDAPAMIDE [Concomitant]
     Dosage: UNK
  7. METFORMIN [Concomitant]
     Dosage: UNK
  8. SIMVASTATIN [Suspect]
     Dosage: 20 MG, 1X/DAY

REACTIONS (3)
  - INTERNATIONAL NORMALISED RATIO INCREASED [None]
  - HAEMORRHAGE [None]
  - DRUG INTERACTION [None]
